FAERS Safety Report 10236072 (Version 1)
Quarter: 2014Q2

REPORT INFORMATION
  Report Type: Spontaneous
  Country: GB (occurrence: GB)
  Receive Date: 20140613
  Receipt Date: 20140613
  Transmission Date: 20141212
  Serious: Yes (Other)
  Sender: FDA-Public Use
  Company Number: GB-TEVA-486901ISR

PATIENT
  Age: 46 Year
  Sex: Male

DRUGS (3)
  1. VINCRISTINE [Suspect]
  2. LOMUSTINE [Suspect]
  3. PROCARBAZINE [Suspect]

REACTIONS (2)
  - Full blood count abnormal [Unknown]
  - Bone marrow toxicity [Unknown]
